FAERS Safety Report 5805875-7 (Version None)
Quarter: 2008Q3

REPORT INFORMATION
  Report Type: 
  Country: None (occurrence: None)
  Receive Date: 20080708
  Receipt Date: 20080612
  Transmission Date: 20090109
  Serious: Yes (Other)
  Sender: FDA-Public Use
  Company Number: 2008SP009943

PATIENT
  Age: 59 Year
  Sex: Female

DRUGS (5)
  1. CLARITIN [Suspect]
     Indication: EYE PRURITUS
     Dosage: 10 MG; QD;
     Dates: start: 20080101
  2. CLARITIN [Suspect]
     Indication: NASAL CONGESTION
     Dosage: 10 MG; QD;
     Dates: start: 20080101
  3. ATENOLOL [Concomitant]
  4. ZOCOR [Concomitant]
  5. NEXIUM [Concomitant]

REACTIONS (1)
  - ARTERIOSPASM CORONARY [None]
